FAERS Safety Report 13786961 (Version 1)
Quarter: 2017Q3

REPORT INFORMATION
  Report Type: Spontaneous
  Country: US (occurrence: US)
  Receive Date: 20170725
  Receipt Date: 20170725
  Transmission Date: 20171127
  Serious: No
  Sender: FDA-Public Use
  Company Number: US-TEVA-732870ACC

PATIENT
  Age: 31 Year
  Sex: Female
  Weight: 57.66 kg

DRUGS (22)
  1. SUMATRIPTAN SUCCINATE. [Concomitant]
     Active Substance: SUMATRIPTAN SUCCINATE
     Route: 048
     Dates: start: 20160127
  2. BENTYL [Concomitant]
     Active Substance: DICYCLOMINE HYDROCHLORIDE
  3. CYMBALTA [Concomitant]
     Active Substance: DULOXETINE HYDROCHLORIDE
     Dosage: 120 MILLIGRAM DAILY;
     Route: 048
  4. JOLIVETTE [Concomitant]
     Active Substance: NORETHINDRONE
     Dosage: .35 MILLIGRAM DAILY;
     Route: 048
  5. PROMETHAZINE [Concomitant]
     Active Substance: PROMETHAZINE\PROMETHAZINE HYDROCHLORIDE
     Route: 048
     Dates: start: 20151030
  6. TOPIRAMATE. [Concomitant]
     Active Substance: TOPIRAMATE
     Route: 048
     Dates: start: 20160111
  7. DIPHENOXYLATE-ATROPINE 2.0-0.025MG [Concomitant]
     Route: 048
     Dates: start: 20160219
  8. BACLOFEN. [Suspect]
     Active Substance: BACLOFEN
     Dosage: 15 MILLIGRAM DAILY;
     Route: 048
     Dates: start: 20160613
  9. DULOXETINE. [Concomitant]
     Active Substance: DULOXETINE
     Route: 048
     Dates: start: 20161017
  10. LAMOTRIGINE. [Concomitant]
     Active Substance: LAMOTRIGINE
     Route: 048
     Dates: start: 20151203
  11. LEVETIRACETAM. [Concomitant]
     Active Substance: LEVETIRACETAM
     Dosage: 500 MILLIGRAM DAILY;
     Route: 048
     Dates: start: 20160927
  12. NITROFURANTOIN MONOHYD/M-CRYST [Concomitant]
     Route: 048
     Dates: start: 20160111
  13. OXYCODONE-ACETAMINOPHEN 10-325MG [Concomitant]
     Route: 048
     Dates: start: 20151030
  14. TOPIRAMATE. [Concomitant]
     Active Substance: TOPIRAMATE
     Route: 048
     Dates: start: 20151209
  15. CARBAMAZEPINE. [Suspect]
     Active Substance: CARBAMAZEPINE
     Route: 065
  16. LOMOTIL  2.5 - 0.025MG [Concomitant]
     Dosage: 2 TABLETS ONCE DAILY AS NEEDED
     Route: 048
  17. NAPROXEN SODIUM. [Concomitant]
     Active Substance: NAPROXEN SODIUM
     Dosage: 1100 MILLIGRAM DAILY;
     Route: 048
     Dates: start: 20160429
  18. OXCARBAZEPINE. [Concomitant]
     Active Substance: OXCARBAZEPINE
     Route: 048
     Dates: start: 20160301
  19. BUTALBITAL-ACETAMINOPHEN-CAFFEINE 50-325-40MG [Concomitant]
     Route: 048
     Dates: start: 20160915
  20. BENZONATATE. [Concomitant]
     Active Substance: BENZONATATE
     Route: 048
     Dates: start: 20151209
  21. IMITREX [Concomitant]
     Active Substance: SUMATRIPTAN SUCCINATE
     Indication: MIGRAINE
     Route: 048
  22. PROMETHAZINE [Concomitant]
     Active Substance: PROMETHAZINE\PROMETHAZINE HYDROCHLORIDE
     Dosage: 1 TABLET (12.5 MG) EVERY 6 HOURS AS NEEDED
     Route: 048

REACTIONS (2)
  - Drug ineffective [Unknown]
  - Drug eruption [Unknown]

NARRATIVE: CASE EVENT DATE: 20160613
